FAERS Safety Report 9833332 (Version 3)
Quarter: 2015Q3

REPORT INFORMATION
  Report Type: Spontaneous
  Country: US (occurrence: US)
  Receive Date: 20140121
  Receipt Date: 20150817
  Transmission Date: 20151125
  Serious: No
  Sender: FDA-Public Use
  Company Number: US-GILEAD-2014-0092642

PATIENT
  Age: 82 Year
  Sex: Male

DRUGS (4)
  1. LETAIRIS [Suspect]
     Active Substance: AMBRISENTAN
     Indication: FIBROSIS
  2. LETAIRIS [Suspect]
     Active Substance: AMBRISENTAN
     Indication: PULMONARY ARTERIAL HYPERTENSION
     Route: 048
     Dates: start: 20131002, end: 20140102
  3. LETAIRIS [Suspect]
     Active Substance: AMBRISENTAN
     Indication: CARDIAC DISORDER
  4. LETAIRIS [Suspect]
     Active Substance: AMBRISENTAN
     Indication: LUNG DISORDER

REACTIONS (1)
  - Malaise [Not Recovered/Not Resolved]

NARRATIVE: CASE EVENT DATE: 20131101
